FAERS Safety Report 7897797-5 (Version None)
Quarter: 2011Q4

REPORT INFORMATION
  Report Type: 
  Country: None (occurrence: None)
  Receive Date: 20111107
  Receipt Date: 20111104
  Transmission Date: 20120403
  Serious: Yes (Other)
  Sender: FDA-Public Use
  Company Number: US-ROCHE-769668

PATIENT
  Sex: Male
  Weight: 61.29 kg

DRUGS (1)
  1. ACCUTANE [Suspect]
     Indication: ACNE
     Route: 065
     Dates: start: 20040227, end: 20040806

REACTIONS (7)
  - COLITIS ULCERATIVE [None]
  - STRESS [None]
  - DEPRESSION [None]
  - LIP DRY [None]
  - INFLAMMATORY BOWEL DISEASE [None]
  - HEADACHE [None]
  - MYALGIA [None]
